FAERS Safety Report 15260954 (Version 3)
Quarter: 2018Q4

REPORT INFORMATION
  Report Type: Report from Study
  Country: US (occurrence: US)
  Receive Date: 20180809
  Receipt Date: 20181228
  Transmission Date: 20190204
  Serious: Yes (Disabling, Other)
  Sender: FDA-Public Use
  Company Number: PHEH2018US031956

PATIENT
  Sex: Female

DRUGS (1)
  1. ENTRESTO [Suspect]
     Active Substance: SACUBITRIL\VALSARTAN
     Indication: PRODUCT USED FOR UNKNOWN INDICATION
     Dosage: 100 MG (49 MG SACUBITRIL/ 51 MG VALSARTAN), UNK
     Route: 048

REACTIONS (8)
  - Asthma [Unknown]
  - Vomiting [Unknown]
  - Malaise [Unknown]
  - Sleep apnoea syndrome [Unknown]
  - Cardiac failure congestive [Unknown]
  - Fatigue [Unknown]
  - Chronic obstructive pulmonary disease [Unknown]
  - Diabetes mellitus [Unknown]
